FAERS Safety Report 6368158 (Version 2)
Quarter: 2025Q2

REPORT INFORMATION
  Report Type: Spontaneous
  Country: AT (occurrence: AT)
  Receive Date: 20070726
  Receipt Date: 20250625
  Transmission Date: 20250717
  Serious: Yes (Other)
  Sender: PFIZER
  Company Number: AT-PFIZER INC-2007059014

PATIENT
  Age: 45 Year
  Sex: Female

DRUGS (1)
  1. FRAGMIN [Suspect]
     Active Substance: DALTEPARIN SODIUM
     Indication: Thrombophlebitis
     Dosage: 5000 IU, 1X/DAY (4 INJECTIONS) IN THE RIGHT THIGH

REACTIONS (2)
  - Acute generalised exanthematous pustulosis [Recovered/Resolved]
  - Injection site reaction [Recovered/Resolved]
